FAERS Safety Report 22116927 (Version 1)
Quarter: 2023Q1

REPORT INFORMATION
  Report Type: Spontaneous
  Country: US (occurrence: US)
  Receive Date: 20230320
  Receipt Date: 20230320
  Transmission Date: 20230418
  Serious: No
  Sender: FDA-Public Use
  Company Number: US-SAREPTA THERAPEUTICS INC.-SRP2023-003023

PATIENT
  Age: 12 Year
  Sex: Male
  Weight: 60.5 kg

DRUGS (5)
  1. VYONDYS 53 [Suspect]
     Active Substance: GOLODIRSEN
     Indication: Duchenne muscular dystrophy
     Dosage: 1700 MILLIGRAM WEEKLY
     Route: 042
     Dates: start: 20210312, end: 20230120
  2. VYONDYS 53 [Suspect]
     Active Substance: GOLODIRSEN
     Dosage: 1700 MILLIGRAM, WEEKLY
     Route: 042
     Dates: start: 20230131
  3. DEFLAZACORT [Concomitant]
     Active Substance: DEFLAZACORT
     Indication: Product used for unknown indication
     Dosage: 36 MILLIGRAM, QD
     Route: 048
     Dates: start: 20210308
  4. VITAMIN D3 [Concomitant]
     Active Substance: CHOLECALCIFEROL
     Indication: Product used for unknown indication
     Dosage: 10 MICROGRAM PER LITRE, QD
     Route: 048
     Dates: start: 20210308
  5. LISINOPRIL [Concomitant]
     Active Substance: LISINOPRIL
     Indication: Product used for unknown indication
     Dosage: 5 MILLIGRAM, QD
     Route: 048
     Dates: start: 20220311

REACTIONS (3)
  - Catheter site oedema [Unknown]
  - Device dislocation [Unknown]
  - Product administration interrupted [Unknown]

NARRATIVE: CASE EVENT DATE: 20230127
